FAERS Safety Report 20550523 (Version 1)
Quarter: 2022Q1

REPORT INFORMATION
  Report Type: Spontaneous
  Country: US (occurrence: US)
  Receive Date: 20220304
  Receipt Date: 20220304
  Transmission Date: 20220423
  Serious: Yes (Other)
  Sender: FDA-Public Use
  Company Number: US-AMGEN-USASP2022033660

PATIENT

DRUGS (1)
  1. BEVACIZUMAB [Suspect]
     Active Substance: BEVACIZUMAB
     Indication: Neovascular age-related macular degeneration
     Dosage: UNK

REACTIONS (10)
  - Endophthalmitis [Unknown]
  - Vitreous haemorrhage [Unknown]
  - Retinal tear [Unknown]
  - Retinal detachment [Unknown]
  - Retinal pigment epithelial tear [Unknown]
  - Retinal haemorrhage [Unknown]
  - Choroidal neovascularisation [Recovered/Resolved]
  - Drug effective for unapproved indication [Unknown]
  - Apolipoprotein B increased [Unknown]
  - Off label use [Unknown]
